FAERS Safety Report 23652153 (Version 1)
Quarter: 2024Q1

REPORT INFORMATION
  Report Type: Spontaneous
  Country: US (occurrence: US)
  Receive Date: 20240320
  Receipt Date: 20240320
  Transmission Date: 20240410
  Serious: Yes (Other)
  Sender: FDA-Public Use
  Company Number: US-MELINTA THERAPEUTICS, LLC-US-MLNT-24-00164

PATIENT

DRUGS (2)
  1. METOPROLOL SUCCINATE [Suspect]
     Active Substance: METOPROLOL SUCCINATE
     Indication: Product used for unknown indication
     Dosage: 100 MG IN THE MORNING AND 100 MG IN THE EVENING
  2. METOPROLOL SUCCINATE [Suspect]
     Active Substance: METOPROLOL SUCCINATE
     Dosage: 50 MG IN THE MORNING AND 50 MG IN THE EVENING

REACTIONS (12)
  - Dementia [Unknown]
  - Bedridden [Unknown]
  - Cachexia [Unknown]
  - Atrial fibrillation [Unknown]
  - Cardiac failure congestive [Unknown]
  - Heart valve replacement [Unknown]
  - Impaired quality of life [Unknown]
  - Decreased appetite [Unknown]
  - Condition aggravated [Unknown]
  - Cardiac disorder [Unknown]
  - Oedema [Unknown]
  - Inappropriate schedule of product administration [Unknown]
